FAERS Safety Report 22273760 (Version 2)
Quarter: 2023Q2

REPORT INFORMATION
  Report Type: Spontaneous
  Country: CO (occurrence: CO)
  Receive Date: 20230502
  Receipt Date: 20230609
  Transmission Date: 20230721
  Serious: No
  Sender: FDA-Public Use
  Company Number: CO-PFIZER INC-PV202300073553

PATIENT
  Sex: Male

DRUGS (1)
  1. GENOTROPIN [Suspect]
     Active Substance: SOMATROPIN
     Dosage: UNK
     Route: 058
     Dates: start: 2021

REACTIONS (4)
  - Device delivery system issue [Unknown]
  - Device use issue [Unknown]
  - Body height below normal [Unknown]
  - Weight decreased [Unknown]

NARRATIVE: CASE EVENT DATE: 20230420
